FAERS Safety Report 8361923-4 (Version None)
Quarter: 2012Q2

REPORT INFORMATION
  Report Type: 
  Country: None (occurrence: None)
  Receive Date: 20120515
  Receipt Date: 20120508
  Transmission Date: 20120825
  Serious: Yes (Other)
  Sender: FDA-Public Use
  Company Number: US-ABBOTT-12P-163-0931953-00

PATIENT
  Sex: Female
  Weight: 87.168 kg

DRUGS (8)
  1. HUMIRA [Suspect]
     Indication: RHEUMATOID ARTHRITIS
     Dates: start: 20070101, end: 20080501
  2. HUMIRA [Suspect]
     Indication: CROHN'S DISEASE
     Dates: start: 20080101, end: 20100101
  3. HUMIRA [Suspect]
     Dates: start: 20100101, end: 20100201
  4. HUMIRA [Suspect]
     Dates: start: 20100101, end: 20110601
  5. LYRICA [Concomitant]
     Indication: FIBROMYALGIA
  6. HUMIRA [Suspect]
     Dates: start: 20110901
  7. DILAUDID [Concomitant]
     Indication: PAIN
  8. HUMIRA [Suspect]
     Dates: start: 20100101, end: 20100401

REACTIONS (8)
  - INJECTION SITE PAIN [None]
  - EAR PAIN [None]
  - NERVE INJURY [None]
  - BACK PAIN [None]
  - MUSCULAR WEAKNESS [None]
  - NERVE COMPRESSION [None]
  - POSTOPERATIVE THROMBOSIS [None]
  - NECK PAIN [None]
